FAERS Safety Report 17867897 (Version 4)
Quarter: 2020Q3

REPORT INFORMATION
  Report Type: Spontaneous
  Country: US (occurrence: US)
  Receive Date: 20200606
  Receipt Date: 20200723
  Transmission Date: 20201103
  Serious: No
  Sender: FDA-Public Use
  Company Number: US-HETERO-HET2020US00604

PATIENT

DRUGS (1)
  1. LOSARTAN. [Suspect]
     Active Substance: LOSARTAN
     Indication: PRODUCT USED FOR UNKNOWN INDICATION
     Dosage: UNK
     Route: 048
     Dates: end: 20200504

REACTIONS (3)
  - Product taste abnormal [Recovered/Resolved]
  - Dysgeusia [Recovered/Resolved]
  - Nausea [Recovered/Resolved]
